FAERS Safety Report 16525903 (Version 2)
Quarter: 2019Q4

REPORT INFORMATION
  Report Type: Report from Study
  Country: None (occurrence: BR)
  Receive Date: 20190703
  Receipt Date: 20191112
  Transmission Date: 20200122
  Serious: Yes (Other)
  Sender: FDA-Public Use
  Company Number: BR-ABBVIE-19K-020-2837878-00

PATIENT
  Sex: Female
  Weight: 78 kg

DRUGS (1)
  1. HUMIRA [Suspect]
     Active Substance: ADALIMUMAB
     Indication: HIDRADENITIS
     Route: 058
     Dates: start: 201903, end: 201904

REACTIONS (11)
  - Axillary pain [Unknown]
  - Conjunctivitis [Unknown]
  - Gait disturbance [Unknown]
  - Secretion discharge [Unknown]
  - Pain in extremity [Unknown]
  - Loss of personal independence in daily activities [Unknown]
  - Wound [Not Recovered/Not Resolved]
  - Haemorrhage [Unknown]
  - Skin lesion [Unknown]
  - Musculoskeletal pain [Unknown]
  - Pain [Unknown]

NARRATIVE: CASE EVENT DATE: 2019
